FAERS Safety Report 9772781 (Version 3)
Quarter: 2014Q1

REPORT INFORMATION
  Report Type: Spontaneous
  Country: IT (occurrence: IT)
  Receive Date: 20131219
  Receipt Date: 20140113
  Transmission Date: 20141002
  Serious: Yes (Death, Hospitalization, Other)
  Sender: FDA-Public Use
  Company Number: IT-BRISTOL-MYERS SQUIBB COMPANY-19903830

PATIENT
  Age: 93 Year
  Sex: Female

DRUGS (6)
  1. COUMADIN TABS 5 MG [Suspect]
     Indication: ATRIAL FIBRILLATION
     Dosage: ^1/2, 1/4, 1/4, 1/2^
     Route: 048
     Dates: start: 1994, end: 20130924
  2. RAMIPRIL + HCTZ [Concomitant]
     Dosage: TABS
     Route: 048
  3. CIPROFLOXACIN [Concomitant]
     Indication: PYREXIA
     Dosage: TABS
     Route: 048
     Dates: start: 20130923, end: 20130924
  4. LANOXIN [Concomitant]
     Dosage: TABS?625MCG
     Route: 048
  5. AUGMENTIN [Concomitant]
     Indication: PYREXIA
     Dosage: 875/125 MG TABS
     Route: 048
     Dates: start: 20130912, end: 20130923
  6. DIGOXIN [Concomitant]
     Dosage: TABLETS

REACTIONS (5)
  - Cerebral haemorrhage [Fatal]
  - Anaemia [Unknown]
  - International normalised ratio increased [Unknown]
  - Myelodysplastic syndrome [Unknown]
  - Overdose [Unknown]
